FAERS Safety Report 15897649 (Version 1)
Quarter: 2019Q1

REPORT INFORMATION
  Report Type: Spontaneous
  Country: GB (occurrence: GB)
  Receive Date: 20190131
  Receipt Date: 20190131
  Transmission Date: 20190417
  Serious: Yes (Other)
  Sender: FDA-Public Use
  Company Number: PHHY2019GB019596

PATIENT
  Age: 41 Year
  Sex: Male

DRUGS (2)
  1. TOBRADEX [Suspect]
     Active Substance: DEXAMETHASONE\TOBRAMYCIN
     Indication: PROPHYLAXIS
     Dosage: 3/1 MG/ML, Q2H
     Route: 061
  2. TOBRADEX [Suspect]
     Active Substance: DEXAMETHASONE\TOBRAMYCIN
     Dosage: 3/1 MG/ML, Q2H
     Route: 061

REACTIONS (11)
  - Keratic precipitates [Unknown]
  - Ocular hypertension [Unknown]
  - Pupil fixed [Unknown]
  - Corneal oedema [Unknown]
  - Uveitis [Unknown]
  - Iridocyclitis [Unknown]
  - Eye disorder [Recovered/Resolved]
  - Vision blurred [Unknown]
  - Eye pain [Unknown]
  - Headache [Recovering/Resolving]
  - Conjunctival hyperaemia [Unknown]
